FAERS Safety Report 9650464 (Version 1)
Quarter: 2013Q4

REPORT INFORMATION
  Report Type: Report from Study
  Country: TW (occurrence: TW)
  Receive Date: 20131029
  Receipt Date: 20131029
  Transmission Date: 20140711
  Serious: No
  Sender: FDA-Public Use
  Company Number: PHHY2013TW120381

PATIENT
  Age: 36 Year
  Sex: Male

DRUGS (10)
  1. AMN107 [Suspect]
     Indication: CHRONIC MYELOID LEUKAEMIA
  2. AMOXICILLIN [Concomitant]
     Dosage: 2000 MG, UNK
     Route: 048
     Dates: start: 20130815, end: 20130818
  3. BETTER-IODINE [Concomitant]
     Dosage: 40 ML, UNK
     Dates: start: 20130815, end: 20130822
  4. DICLOFENAC POTASSIUM [Concomitant]
     Dosage: 100 MG, UNK
     Route: 048
     Dates: start: 20130815, end: 20130820
  5. SERRATIOPEPTIDASE [Concomitant]
     Dosage: 15 MG, UNK
     Route: 048
     Dates: start: 20130815, end: 20130820
  6. TRANEXAMIC ACID [Concomitant]
     Dosage: 750 MG, UNK
     Route: 048
     Dates: start: 20130815, end: 20130818
  7. MAGNESIUM ALUMINUM SILICATE [Concomitant]
     Dosage: 1 DF, UNK
     Route: 048
     Dates: start: 20130815, end: 20130820
  8. DIHYDROXYALUMINUM ALLANTOINATE [Concomitant]
     Dosage: 1 DF, UNK
     Route: 048
     Dates: start: 20130815, end: 20130820
  9. MEPIVACAINE HCL [Concomitant]
     Dosage: 1 ML, UNK
     Dates: start: 20130815, end: 20130815
  10. ADRENALINE [Concomitant]
     Dosage: 1 ML, UNK
     Dates: start: 20130815, end: 20130815

REACTIONS (2)
  - Alveolar osteitis [Recovered/Resolved]
  - Tooth development disorder [Recovered/Resolved]
